FAERS Safety Report 14176143 (Version 2)
Quarter: 2017Q4

REPORT INFORMATION
  Report Type: Spontaneous
  Country: IT (occurrence: IT)
  Receive Date: 20171109
  Receipt Date: 20171127
  Transmission Date: 20180321
  Serious: Yes (Life-Threatening)
  Sender: FDA-Public Use
  Company Number: IT-ELI_LILLY_AND_COMPANY-IT201711001702

PATIENT
  Age: 66 Year
  Sex: Male

DRUGS (2)
  1. CISPLATIN. [Concomitant]
     Active Substance: CISPLATIN
     Indication: LUNG ADENOCARCINOMA
     Dosage: 140 MG, UNKNOWN
     Route: 042
     Dates: start: 20170227, end: 20170410
  2. ALIMTA [Suspect]
     Active Substance: PEMETREXED DISODIUM
     Indication: LUNG ADENOCARCINOMA
     Dosage: 900 MG, CYCLICAL
     Route: 042
     Dates: start: 20170227, end: 20170410

REACTIONS (2)
  - Intestinal perforation [Not Recovered/Not Resolved]
  - Faecal vomiting [Not Recovered/Not Resolved]

NARRATIVE: CASE EVENT DATE: 20170411
